FAERS Safety Report 8795291 (Version 1)
Quarter: 2020Q3

REPORT INFORMATION
  Report Type: Report from Study
  Country: JP (occurrence: JP)
  Receive Date: 20120917
  Receipt Date: 20120917
  Transmission Date: 20201104
  Serious: Yes (Hospitalization)
  Sender: FDA-Public Use
  Company Number: JP-MSD-1207JPN000549

PATIENT

DRUGS (7)
  1. FOSAMAC TABLETS 35MG [Concomitant]
     Active Substance: ALENDRONATE SODIUM
     Indication: OSTEOPOROSIS
     Dosage: 35 MG, QW
     Route: 048
     Dates: start: 20110101
  2. REBETOL [Suspect]
     Active Substance: RIBAVIRIN
     Indication: HEPATITIS C
     Dosage: UNK UNK, BID
     Dates: start: 20111114, end: 20120429
  3. MAGLAX [Concomitant]
     Active Substance: MAGNESIUM OXIDE
     Indication: GASTRITIS PROPHYLAXIS
     Dosage: 330 MG, TID
     Route: 048
     Dates: start: 20110101
  4. PEGINTRON [Suspect]
     Active Substance: PEGINTERFERON ALFA-2B
     Indication: HEPATITIS C
     Dosage: 80 MICROGRAM, QW
     Route: 058
     Dates: start: 20111114, end: 20120423
  5. VANIPREVIR. [Suspect]
     Active Substance: VANIPREVIR
     Indication: HEPATITIS C
     Dosage: 2 DF, BID
     Route: 048
     Dates: start: 20111114, end: 20120429
  6. AZUNOL (SODIUM GUALENATE) [Concomitant]
     Indication: PROPHYLAXIS
     Dosage: UNK
     Dates: start: 20120501, end: 20120513
  7. BIO?THREE [Concomitant]
     Active Substance: HERBALS
     Indication: CONSTIPATION
     Dosage: 200 MG, TID
     Route: 048
     Dates: start: 20110101, end: 20120709

REACTIONS (1)
  - Diffuse large B-cell lymphoma [Not Recovered/Not Resolved]

NARRATIVE: CASE EVENT DATE: 20120501
